FAERS Safety Report 11788921 (Version 1)
Quarter: 2015Q4

REPORT INFORMATION
  Report Type: Spontaneous
  Country: US (occurrence: None)
  Receive Date: 20151130
  Receipt Date: 20151130
  Transmission Date: 20160305
  Serious: No
  Sender: FDA-Public Use
  Company Number: None

PATIENT
  Age: 75 Year
  Sex: Female
  Weight: 44.45 kg

DRUGS (10)
  1. STINT [Concomitant]
  2. ALPRAZOLAM. [Concomitant]
     Active Substance: ALPRAZOLAM
  3. NIFEDIPINE ER [Concomitant]
     Active Substance: NIFEDIPINE
  4. NITROLINGUAL [Concomitant]
     Active Substance: NITROGLYCERIN
  5. MEDTRON INTERSTIM ICON [Concomitant]
  6. PACEMAKER [Concomitant]
  7. LOW DOSE ASPIRIN [Concomitant]
     Active Substance: ASPIRIN
  8. OTEZLA [Suspect]
     Active Substance: APREMILAST
     Indication: PSORIASIS
     Dosage: 1-30 MG TABLET, 2 MONTHS + 20 DAYS
     Route: 048
  9. ATENOLOL. [Concomitant]
     Active Substance: ATENOLOL
  10. ISOSORBIDE. [Concomitant]
     Active Substance: ISOSORBIDE

REACTIONS (8)
  - Vomiting [None]
  - Asthenia [None]
  - Psoriasis [None]
  - Gait disturbance [None]
  - Decreased appetite [None]
  - Weight decreased [None]
  - Arthralgia [None]
  - Diarrhoea [None]

NARRATIVE: CASE EVENT DATE: 20150820
